FAERS Safety Report 5786996-4 (Version None)
Quarter: 2008Q2

REPORT INFORMATION
  Report Type: 
  Country: None (occurrence: None)
  Receive Date: 20080625
  Receipt Date: 20080623
  Transmission Date: 20081010
  Serious: No
  Sender: FDA-Public Use
  Company Number: US-BAYER-200823598NA

PATIENT
  Sex: Female
  Weight: 77 kg

DRUGS (1)
  1. YAZ [Suspect]
     Indication: MENSTRUATION IRREGULAR
     Route: 048
     Dates: start: 20080101

REACTIONS (3)
  - BLOOD CHOLESTEROL INCREASED [None]
  - BLOOD CORTISOL INCREASED [None]
  - THYROID FUNCTION TEST ABNORMAL [None]
